FAERS Safety Report 14259301 (Version 3)
Quarter: 2018Q1

REPORT INFORMATION
  Report Type: Spontaneous
  Country: JP (occurrence: JP)
  Receive Date: 20171207
  Receipt Date: 20180301
  Transmission Date: 20180508
  Serious: Yes (Other)
  Sender: FDA-Public Use
  Company Number: JP-JNJFOC-20171203817

PATIENT
  Age: 68 Year
  Sex: Female

DRUGS (2)
  1. REMICADE [Suspect]
     Active Substance: INFLIXIMAB
     Indication: RHEUMATOID ARTHRITIS
     Dosage: 3 YEARS 3 MONTHS
     Route: 042
  2. METHOTREXATE. [Suspect]
     Active Substance: METHOTREXATE
     Indication: RHEUMATOID ARTHRITIS
     Route: 065

REACTIONS (5)
  - Meningitis aseptic [Recovered/Resolved]
  - Vasculitis necrotising [Recovered/Resolved]
  - Eosinophilic colitis [Recovered/Resolved]
  - Inflammatory pseudotumour [Recovered/Resolved]
  - Chest X-ray abnormal [Recovered/Resolved]
